FAERS Safety Report 4836297-3 (Version None)
Quarter: 2005Q4

REPORT INFORMATION
  Report Type: 
  Country: None (occurrence: None)
  Receive Date: 20051123
  Receipt Date: 20050310
  Transmission Date: 20060501
  Serious: Yes (Hospitalization)
  Sender: FDA-Public Use
  Company Number: PHRM2005FR01030

PATIENT
  Age: 65 Year
  Sex: Female

DRUGS (2)
  1. GLEEVEC [Suspect]
     Indication: CHRONIC MYELOID LEUKAEMIA
     Dosage: 200 MG, QD
     Route: 048
     Dates: start: 20030501
  2. GLEEVEC [Suspect]
     Dosage: 600 MG/DAY
     Route: 048

REACTIONS (9)
  - APHASIA [None]
  - CONFUSIONAL STATE [None]
  - CSF LYMPHOCYTE COUNT INCREASED [None]
  - DRUG INEFFECTIVE [None]
  - ENCEPHALITIS [None]
  - MENINGITIS LISTERIA [None]
  - MONOCYTOPENIA [None]
  - MUSCULOSKELETAL STIFFNESS [None]
  - PYREXIA [None]
